FAERS Safety Report 10501536 (Version 2)
Quarter: 2014Q4

REPORT INFORMATION
  Report Type: Spontaneous
  Country: US (occurrence: US)
  Receive Date: 20141007
  Receipt Date: 20141024
  Transmission Date: 20150528
  Serious: Yes (Hospitalization, Other)
  Sender: FDA-Public Use
  Company Number: US-BAYER-2014-144991

PATIENT
  Age: 64 Year
  Sex: Male

DRUGS (25)
  1. ALEVE [Suspect]
     Active Substance: NAPROXEN SODIUM
     Dosage: UNK
     Route: 048
     Dates: start: 2009
  2. AFINITOR [Suspect]
     Active Substance: EVEROLIMUS
     Dosage: UNK
     Dates: end: 20100628
  3. PAZOPANIB [Suspect]
     Active Substance: PAZOPANIB
  4. NEXAVAR [Suspect]
     Active Substance: SORAFENIB
     Indication: METASTASES TO LUNG
     Dosage: 400 MG, QD
     Dates: start: 200702, end: 200712
  5. INLYTA [Suspect]
     Active Substance: AXITINIB
  6. FLAGYL [Concomitant]
     Active Substance: METRONIDAZOLE\METRONIDAZOLE HYDROCHLORIDE
  7. BAYER GENUINE ASPIRIN [Suspect]
     Active Substance: ASPIRIN
  8. FLORASTOR [Concomitant]
     Active Substance: SACCHAROMYCES CEREVISIAE
  9. DOXYCYCLINE. [Concomitant]
     Active Substance: DOXYCYCLINE
  10. BENADRYL [Concomitant]
     Active Substance: DIPHENHYDRAMINE HYDROCHLORIDE
  11. HYDROCODONE [Concomitant]
     Active Substance: HYDROCODONE
  12. BACTRIM [Concomitant]
     Active Substance: SULFAMETHOXAZOLE\TRIMETHOPRIM
  13. LOMOTIL [DIPHENOXYLATE HYDROCHLORIDE] [Concomitant]
  14. ZITHROMAX [Concomitant]
     Active Substance: AZITHROMYCIN DIHYDRATE
  15. LEVAQUIN [Concomitant]
     Active Substance: LEVOFLOXACIN
  16. COUMADIN [Concomitant]
     Active Substance: WARFARIN SODIUM
  17. MORPHINE [Concomitant]
     Active Substance: MORPHINE
  18. MEROPENEM. [Concomitant]
     Active Substance: MEROPENEM
  19. OXYGEN. [Concomitant]
     Active Substance: OXYGEN
  20. LANTUS [Concomitant]
     Active Substance: INSULIN GLARGINE
  21. HUMALOG [Concomitant]
     Active Substance: INSULIN LISPRO
  22. MIRIMOSTIM [Concomitant]
     Active Substance: MIRIMOSTIM
  23. VFEND [Concomitant]
     Active Substance: VORICONAZOLE
  24. ZOVIRAX [Concomitant]
     Active Substance: ACYCLOVIR
  25. TORISEL [Concomitant]
     Active Substance: TEMSIROLIMUS

REACTIONS (69)
  - Mucosal inflammation [None]
  - Dyspnoea [None]
  - Sleep apnoea syndrome [None]
  - Fatigue [Recovered/Resolved]
  - Diabetes mellitus [None]
  - Bone pain [None]
  - Respiratory disorder [None]
  - Haemoptysis [None]
  - Pneumonia [Recovered/Resolved]
  - Confusional state [Recovered/Resolved]
  - Bronchial disorder [Recovering/Resolving]
  - Hypoxia [Recovering/Resolving]
  - Palmar-plantar erythrodysaesthesia syndrome [None]
  - Angina pectoris [Recovering/Resolving]
  - Coronary artery disease [Recovering/Resolving]
  - Hyperglycaemia [None]
  - Partial lung resection [Recovered/Resolved]
  - Dyspnoea [None]
  - Aspergillus infection [None]
  - Haemoptysis [Recovering/Resolving]
  - Pyrexia [Recovering/Resolving]
  - Confusional state [Recovering/Resolving]
  - Aortic valve calcification [None]
  - Asthenia [None]
  - Fatigue [Not Recovered/Not Resolved]
  - Hypertension [None]
  - Diarrhoea [None]
  - Osteoarthritis [None]
  - Pain in extremity [None]
  - Myalgia [None]
  - Bronchial disorder [Recovering/Resolving]
  - Bronchitis [Recovering/Resolving]
  - Weight decreased [None]
  - Fatigue [None]
  - Cytopenia [None]
  - Swollen tongue [Recovered/Resolved]
  - Diverticulitis [None]
  - Diarrhoea [None]
  - Medication error [None]
  - Asthenia [None]
  - Abdominal pain [None]
  - Hyperlipidaemia [None]
  - Hypoxia [Recovered/Resolved]
  - Renal failure [Recovering/Resolving]
  - Ligament sprain [None]
  - Pneumonia [Recovering/Resolving]
  - Dyspnoea [Recovering/Resolving]
  - Ischaemic stroke [Recovering/Resolving]
  - Fatigue [None]
  - Acute myocardial infarction [None]
  - Metastases to lung [Recovering/Resolving]
  - Metastases to lung [None]
  - Pain in extremity [None]
  - Paraesthesia [None]
  - Oral pain [Recovered/Resolved]
  - Constipation [None]
  - Mental status changes [Recovered/Resolved]
  - Thrombocytopenia [None]
  - Cerebral infarction [Recovering/Resolving]
  - Chronic obstructive pulmonary disease [Recovering/Resolving]
  - Atrial fibrillation [None]
  - Dyspnoea [Not Recovered/Not Resolved]
  - Pain in extremity [None]
  - Pneumonia [None]
  - Abdominal pain lower [None]
  - Bronchitis chronic [None]
  - Hypotension [Recovering/Resolving]
  - Sleep apnoea syndrome [None]
  - Asthenia [Recovering/Resolving]

NARRATIVE: CASE EVENT DATE: 20070116
